FAERS Safety Report 25197909 (Version 2)
Quarter: 2025Q2

REPORT INFORMATION
  Report Type: Spontaneous
  Country: CA (occurrence: CA)
  Receive Date: 20250415
  Receipt Date: 20250602
  Transmission Date: 20250716
  Serious: Yes (Other)
  Sender: SANOFI AVENTIS
  Company Number: CA-SA-2025SA105456

PATIENT
  Age: 72 Year
  Sex: Male
  Weight: 80 kg

DRUGS (4)
  1. INSULIN ASPART [Suspect]
     Active Substance: INSULIN ASPART
     Indication: Diabetes mellitus
     Dosage: 26 U, QID
     Route: 058
     Dates: start: 202402, end: 202405
  2. INSULIN ASPART [Suspect]
     Active Substance: INSULIN ASPART
     Route: 058
     Dates: start: 20240805, end: 20240912
  3. TRESIBA [Concomitant]
     Active Substance: INSULIN DEGLUDEC
  4. CYMBALTA [Concomitant]
     Active Substance: DULOXETINE HYDROCHLORIDE

REACTIONS (9)
  - Anxiety [Recovered/Resolved]
  - Palpitations [Recovered/Resolved]
  - Weight increased [Recovered/Resolved]
  - Increased insulin requirement [Recovered/Resolved]
  - Rash [Recovered/Resolved]
  - Nausea [Recovered/Resolved]
  - Blood glucose abnormal [Recovered/Resolved]
  - Hyperglycaemia [Recovered/Resolved]
  - Glycosylated haemoglobin increased [Recovered/Resolved]
